FAERS Safety Report 10570117 (Version 1)
Quarter: 2014Q4

REPORT INFORMATION
  Report Type: Spontaneous
  Country: GB (occurrence: GB)
  Receive Date: 20141107
  Receipt Date: 20141107
  Transmission Date: 20150529
  Serious: Yes (Disabling)
  Sender: FDA-Public Use
  Company Number: GB-RANBAXY-2014RR-87612

PATIENT

DRUGS (2)
  1. CODEINE [Suspect]
     Active Substance: CODEINE
     Indication: PAIN
     Route: 065
  2. GENTAMICIN. [Suspect]
     Active Substance: GENTAMICIN
     Indication: BILIARY SEPSIS
     Dosage: 455 MG, UNK
     Route: 042
     Dates: start: 20140525, end: 20140602

REACTIONS (2)
  - Dizziness [Not Recovered/Not Resolved]
  - Vestibular disorder [Not Recovered/Not Resolved]
